FAERS Safety Report 18048519 (Version 1)
Quarter: 2020Q3

REPORT INFORMATION
  Report Type: Spontaneous
  Country: US (occurrence: US)
  Receive Date: 20200721
  Receipt Date: 20200721
  Transmission Date: 20201103
  Serious: Yes (Life-Threatening)
  Sender: FDA-Public Use
  Company Number: US-ADAREPHARM-2020-US-000064

PATIENT
  Age: 28 Year
  Sex: Female

DRUGS (4)
  1. PARACETAMOL [Concomitant]
     Active Substance: ACETAMINOPHEN
     Dosage: UNKNOWN AMOUNT
     Route: 048
  2. ACETYLSALICYLIC ACID [Concomitant]
     Active Substance: ASPIRIN
     Dosage: UNKNOWN AMOUNT
     Route: 048
  3. PROPRANOLOL [Suspect]
     Active Substance: PROPRANOLOL HYDROCHLORIDE
     Dosage: UNKNOWN AMOUNT/ OVERDOSE
     Route: 048
  4. IBUPROFEN. [Concomitant]
     Active Substance: IBUPROFEN
     Dosage: UNKNOWN AMOUNT
     Route: 048

REACTIONS (10)
  - Shock [Recovered/Resolved]
  - Coma [Recovering/Resolving]
  - Circulatory collapse [Recovering/Resolving]
  - Brain death [Unknown]
  - Hypoxic-ischaemic encephalopathy [Unknown]
  - Cardiac arrest [Recovering/Resolving]
  - Acute respiratory failure [Recovering/Resolving]
  - Toxicity to various agents [Recovering/Resolving]
  - Intentional overdose [Recovering/Resolving]
  - Cardio-respiratory arrest [Recovering/Resolving]
